FAERS Safety Report 7301515-9 (Version None)
Quarter: 2011Q1

REPORT INFORMATION
  Report Type: 
  Country: None (occurrence: None)
  Receive Date: 20110218
  Receipt Date: 20100920
  Transmission Date: 20110831
  Serious: Yes (Other)
  Sender: FDA-Public Use
  Company Number: US-BRISTOL-MYERS SQUIBB COMPANY-15296536

PATIENT
  Age: 41 Year
  Sex: Female

DRUGS (2)
  1. KENALOG [Suspect]
     Indication: ANALGESIC THERAPY
     Dosage: 120MG:20MAY2008 120MG:27MAY2008
     Dates: start: 20080515
  2. MARCAINE [Suspect]
     Indication: ANALGESIC THERAPY
     Dosage: 1/4 PERCENTAGE, 120MG:20MAY2008 120MG:27MAY2008
     Dates: start: 20080515

REACTIONS (15)
  - ALOPECIA [None]
  - NAUSEA [None]
  - PYREXIA [None]
  - RESTLESSNESS [None]
  - MENSTRUAL DISORDER [None]
  - WEIGHT DECREASED [None]
  - DIZZINESS [None]
  - DEPRESSION [None]
  - FATIGUE [None]
  - CONTUSION [None]
  - STRESS [None]
  - DECREASED APPETITE [None]
  - NIGHT SWEATS [None]
  - MUSCLE ATROPHY [None]
  - AMNESIA [None]
